FAERS Safety Report 5766017-X (Version None)
Quarter: 2008Q2

REPORT INFORMATION
  Report Type: 
  Country: None (occurrence: None)
  Receive Date: 20080609
  Receipt Date: 20080215
  Transmission Date: 20081010
  Serious: No
  Sender: FDA-Public Use
  Company Number: 002#4#2008-00067

PATIENT
  Sex: Male

DRUGS (5)
  1. NEUPRO [Suspect]
     Indication: DRUG USE FOR UNKNOWN INDICATION
     Dosage: MG/24H, 1 IN 1 D, TRANSDERMAL
     Route: 062
  2. SINEMET [Concomitant]
  3. SELEGILINE HCL [Concomitant]
  4. ENTACAPONE [Concomitant]
  5. PRAMIPEXOLE DIHYDROCHLORIDE [Concomitant]

REACTIONS (1)
  - INSOMNIA [None]
